FAERS Safety Report 4365367-1 (Version None)
Quarter: 2004Q2

REPORT INFORMATION
  Report Type: 
  Country: None (occurrence: None)
  Receive Date: 20040525
  Receipt Date: 20040504
  Transmission Date: 20050107
  Serious: Yes (Other)
  Sender: FDA-Public Use
  Company Number: USA040566646

PATIENT
  Age: 79 Year
  Sex: Male

DRUGS (2)
  1. FORTEO [Suspect]
     Dates: start: 20031001
  2. ZOCOR [Concomitant]

REACTIONS (6)
  - AORTIC ANEURYSM [None]
  - ARTHRITIS [None]
  - ASTHENIA [None]
  - MUSCLE CRAMP [None]
  - MUSCLE DISORDER [None]
  - PHARMACEUTICAL PRODUCT COMPLAINT [None]
